FAERS Safety Report 15154005 (Version 1)
Quarter: 2018Q3

REPORT INFORMATION
  Report Type: Spontaneous
  Country: GB (occurrence: GB)
  Receive Date: 20180717
  Receipt Date: 20180717
  Transmission Date: 20181010
  Serious: Yes (Other)
  Sender: FDA-Public Use
  Company Number: GB-PFIZER INC-2018282782

PATIENT
  Age: 43 Year
  Sex: Female
  Weight: 46 kg

DRUGS (1)
  1. LUSTRAL [Suspect]
     Active Substance: SERTRALINE HYDROCHLORIDE
     Indication: ANXIETY
     Dosage: 100MG ONCE DAILY MORNING
     Route: 048
     Dates: start: 20170302

REACTIONS (9)
  - Rash [Not Recovered/Not Resolved]
  - Restless legs syndrome [Unknown]
  - Feeling cold [Not Recovered/Not Resolved]
  - Decreased appetite [Unknown]
  - Sleep disorder [Not Recovered/Not Resolved]
  - Night sweats [Not Recovered/Not Resolved]
  - Abnormal loss of weight [Unknown]
  - Dehydration [Not Recovered/Not Resolved]
  - Diarrhoea [Unknown]

NARRATIVE: CASE EVENT DATE: 20180110
